FAERS Safety Report 8769099 (Version 2)
Quarter: 2012Q4

REPORT INFORMATION
  Report Type: 
  Country: US (occurrence: US)
  Receive Date: 20120904
  Receipt Date: 20120918
  Transmission Date: 20130627
  Serious: Yes (Death, Hospitalization)
  Sender: FDA-Public Use
  Company Number: US-ELI_LILLY_AND_COMPANY-US201208009333

PATIENT
  Sex: Male
  Weight: 73 kg

DRUGS (6)
  1. ALIMTA [Suspect]
     Indication: LUNG ADENOCARCINOMA STAGE IV
     Dosage: 950 mg, single
     Route: 042
     Dates: start: 20120817, end: 20120817
  2. CISPLATIN [Concomitant]
     Indication: LUNG ADENOCARCINOMA STAGE IV
     Dosage: 142 mg, single
     Dates: start: 20120817, end: 20120817
  3. VITAMIN B12 [Concomitant]
     Indication: PREMEDICATION
  4. FOLIC ACID [Concomitant]
     Indication: PREMEDICATION
     Dosage: UNK
     Dates: start: 201208
  5. LEUCOVORIN [Concomitant]
     Dosage: 200 mg, every 6 hrs
     Dates: start: 20120824
  6. LEUCOVORIN [Concomitant]
     Dosage: 100 mg, every 6 hrs

REACTIONS (2)
  - Small intestinal perforation [Fatal]
  - Neoplasm progression [Fatal]
